FAERS Safety Report 4421761-1 (Version None)
Quarter: 2004Q3

REPORT INFORMATION
  Report Type: 
  Country: None (occurrence: None)
  Receive Date: 20040806
  Receipt Date: 20040721
  Transmission Date: 20050211
  Serious: Yes (Other)
  Sender: FDA-Public Use
  Company Number: USA040259832

PATIENT
  Age: 9 Year
  Sex: Male
  Weight: 27 kg

DRUGS (1)
  1. STRATTERA [Suspect]
     Indication: ATTENTION DEFICIT/HYPERACTIVITY DISORDER
     Dosage: 25 MG/1 DAY
     Route: 048
     Dates: start: 20030901, end: 20040219

REACTIONS (3)
  - ELECTROCARDIOGRAM ABNORMAL [None]
  - PALPITATIONS [None]
  - WOLFF-PARKINSON-WHITE SYNDROME [None]
